FAERS Safety Report 9668572 (Version 1)
Quarter: 2013Q4

REPORT INFORMATION
  Report Type: Spontaneous
  Country: US (occurrence: US)
  Receive Date: 20131105
  Receipt Date: 20131105
  Transmission Date: 20140711
  Serious: No
  Sender: FDA-Public Use
  Company Number: US-009507513-1311USA000708

PATIENT
  Age: 57 Year
  Sex: Male

DRUGS (1)
  1. PEGINTRON [Suspect]
     Dosage: 150 MCG/O.SML;MIX AS DIRECTED. DIAL TO 0.5ML AND INJECT SUBQ WEEKLY AS DIRECTED BY THE PHYSICIAN
     Route: 058
     Dates: end: 20130801

REACTIONS (1)
  - Injection site rash [Unknown]
